FAERS Safety Report 5453979-3 (Version None)
Quarter: 2007Q3

REPORT INFORMATION
  Report Type: 
  Country: None (occurrence: None)
  Receive Date: 20070917
  Receipt Date: 20060920
  Transmission Date: 20080115
  Serious: Yes (Hospitalization)
  Sender: FDA-Public Use
  Company Number: US-ASTRAZENECA-2006UW03352

PATIENT
  Age: 57 Year
  Sex: Male
  Weight: 117.9 kg

DRUGS (21)
  1. SEROQUEL [Suspect]
     Indication: SLEEP APNOEA SYNDROME
     Dosage: 50 MG FOR AT NIGHT FOR ONE WEEK, THEN 100 MG AT NIGHT
     Route: 048
     Dates: start: 20060201, end: 20060215
  2. MORPHINE PUMP [Suspect]
     Dates: end: 20060215
  3. MORPHINE PUMP [Suspect]
     Dosage: TITRATED UPWARD
     Dates: start: 20060524
  4. FUROSEMIDE [Concomitant]
  5. POTASSIUM CHLORIDE [Concomitant]
  6. ANDROGEL [Concomitant]
  7. EFFEXOR XR [Concomitant]
  8. WELLBUTRIN XL [Concomitant]
  9. PREVACID [Concomitant]
  10. OXYCONTIN [Concomitant]
  11. LYRICA [Concomitant]
  12. BACLOFEN [Concomitant]
  13. NEURONTIN [Concomitant]
  14. FLOMAX [Concomitant]
  15. ALPRAZOLAM [Concomitant]
  16. KLONOPIN [Concomitant]
     Indication: RAPID EYE MOVEMENTS SLEEP ABNORMAL
  17. REGLAN [Concomitant]
  18. HYDROCODONE [Concomitant]
  19. ROEZIT [Concomitant]
     Indication: NASAL DRYNESS
  20. ELAVIL [Concomitant]
     Indication: VIRUS SEROLOGY TEST POSITIVE
  21. ELAVIL [Concomitant]
     Indication: NEUROPATHY

REACTIONS (2)
  - DYSPHAGIA [None]
  - MYOCLONUS [None]
